FAERS Safety Report 20844051 (Version 1)
Quarter: 2022Q2

REPORT INFORMATION
  Report Type: Spontaneous
  Country: US (occurrence: US)
  Receive Date: 20220518
  Receipt Date: 20220518
  Transmission Date: 20220721
  Serious: Yes (Other)
  Sender: FDA-Public Use
  Company Number: US-PFIZER INC-202200680796

PATIENT

DRUGS (1)
  1. DIPHENHYDRAMINE HYDROCHLORIDE [Suspect]
     Active Substance: DIPHENHYDRAMINE HYDROCHLORIDE
     Dosage: UNK UNK, 4X/DAY
     Route: 041

REACTIONS (4)
  - Autonomic neuropathy [Unknown]
  - Impaired gastric emptying [Unknown]
  - Blood disorder [Unknown]
  - Drug hypersensitivity [Unknown]
